FAERS Safety Report 6133127-7 (Version None)
Quarter: 2009Q1

REPORT INFORMATION
  Report Type: 
  Country: None (occurrence: None)
  Receive Date: 20090325
  Receipt Date: 20090325
  Transmission Date: 20090719
  Serious: Yes (Hospitalization)
  Sender: FDA-Public Use
  Company Number: None

PATIENT
  Age: 40 Year
  Sex: Female
  Weight: 48.0813 kg

DRUGS (2)
  1. ULTRAM [Suspect]
     Indication: PAIN
     Dates: start: 20080820, end: 20080820
  2. ULTRAM [Suspect]
     Indication: SYRINGOMYELIA
     Dates: start: 20080820, end: 20080820

REACTIONS (2)
  - DIZZINESS [None]
  - TREMOR [None]
